FAERS Safety Report 4828501-2 (Version None)
Quarter: 2005Q4

REPORT INFORMATION
  Report Type: 
  Country: None (occurrence: None)
  Receive Date: 20051115
  Receipt Date: 20051011
  Transmission Date: 20060501
  Serious: Yes (Other)
  Sender: FDA-Public Use
  Company Number: US-ROCHE-420964

PATIENT
  Age: 52 Year
  Sex: Male
  Weight: 95.3 kg

DRUGS (4)
  1. PEGASYS [Suspect]
     Dosage: ROUTE REPORTED AS INJECTION.
     Route: 050
     Dates: start: 20050708
  2. PEGASYS [Suspect]
     Dosage: ROUTE REPORTED AS INJECTION.
     Route: 050
  3. COPEGUS [Suspect]
     Route: 048
     Dates: start: 20050708
  4. ZOFRAN [Concomitant]
     Indication: NAUSEA
     Route: 048

REACTIONS (14)
  - ALANINE AMINOTRANSFERASE INCREASED [None]
  - AMMONIA INCREASED [None]
  - ASPARTATE AMINOTRANSFERASE INCREASED [None]
  - CHILLS [None]
  - CONFUSIONAL STATE [None]
  - DEPRESSION [None]
  - DIARRHOEA [None]
  - FATIGUE [None]
  - HEADACHE [None]
  - NAUSEA [None]
  - OCULAR ICTERUS [None]
  - PAIN [None]
  - PYREXIA [None]
  - VOMITING [None]
